FAERS Safety Report 4653543-X (Version None)
Quarter: 2005Q2

REPORT INFORMATION
  Report Type: 
  Country: None (occurrence: None)
  Receive Date: 20050404
  Receipt Date: 20050117
  Transmission Date: 20051028
  Serious: No
  Sender: FDA-Public Use
  Company Number: USA050188483

PATIENT
  Age: 54 Year
  Sex: Female

DRUGS (1)
  1. CYMBALTA [Suspect]
     Indication: DEPRESSION
     Dates: start: 20041001

REACTIONS (2)
  - ALOPECIA [None]
  - HAIR TEXTURE ABNORMAL [None]
